FAERS Safety Report 9426784 (Version 1)
Quarter: 2013Q3

REPORT INFORMATION
  Report Type: Spontaneous
  Country: US (occurrence: US)
  Receive Date: 20130730
  Receipt Date: 20130730
  Transmission Date: 20140515
  Serious: Yes (Hospitalization)
  Sender: FDA-Public Use
  Company Number: US-SANOFI-AVENTIS-2013SA013634

PATIENT
  Age: 77 Year
  Sex: Male
  Weight: 98.3 kg

DRUGS (20)
  1. AMBIEN [Suspect]
     Indication: INSOMNIA
     Dosage: QHS AS NEEDED,
     Route: 048
     Dates: start: 2007
  2. BLINDED THERAPY [Suspect]
     Indication: OSTEOARTHRITIS
     Dates: start: 20100527, end: 20100610
  3. BLINDED THERAPY [Suspect]
     Indication: RHEUMATOID ARTHRITIS
     Dates: start: 20100527, end: 20100610
  4. MOMETASONE [Concomitant]
     Dates: start: 20100301
  5. FLUTICASONE PROPIONATE [Concomitant]
     Dates: start: 20090911
  6. BUDESONIDE [Concomitant]
     Dates: start: 20091123
  7. FORMOTEROL FUMARATE [Concomitant]
     Dates: start: 20070806
  8. TIOTROPIUM BROMIDE [Concomitant]
     Dates: start: 20070806
  9. OMALIZUMAB [Concomitant]
     Dates: start: 20070926
  10. EPINEPHRINE [Concomitant]
     Dates: start: 20071231
  11. MONTELUKAST SODIUM [Concomitant]
     Dates: start: 20091123
  12. VERAPAMIL [Concomitant]
     Dates: start: 20090629
  13. LOSARTAN POTASSIUM [Concomitant]
     Dates: start: 20090818
  14. SOLIFENACIN SUCCINATE [Concomitant]
     Dates: start: 2009
  15. ROSUVASTATIN [Concomitant]
     Dates: start: 20090513
  16. METFORMIN HYDROCHLORIDE/PIOGLITAZONE HYDROCHLORIDE [Concomitant]
     Dates: start: 20100301
  17. MIRTAZAPINE [Concomitant]
     Dates: start: 20100719
  18. LEVOTHYROXINE [Concomitant]
     Dates: start: 20100720
  19. MIRTAZAPINE [Concomitant]
     Dates: start: 20100720
  20. AM LACTIN [Concomitant]
     Dates: start: 20090818

REACTIONS (1)
  - Mental status changes [Unknown]
